FAERS Safety Report 6875711-9 (Version None)
Quarter: 2010Q3

REPORT INFORMATION
  Report Type: 
  Country: None (occurrence: None)
  Receive Date: 20100727
  Receipt Date: 20070910
  Transmission Date: 20110219
  Serious: Yes (Hospitalization, Other)
  Sender: FDA-Public Use
  Company Number: US-PFIZER INC-2006109548

PATIENT
  Sex: Female
  Weight: 52.6 kg

DRUGS (3)
  1. CELEBREX [Suspect]
     Indication: PAIN
     Dates: start: 20000101
  2. VIOXX [Suspect]
     Indication: ARTHRITIS
     Dates: start: 19991201, end: 20000501
  3. VIOXX [Suspect]
     Indication: BACK PAIN

REACTIONS (1)
  - CEREBROVASCULAR ACCIDENT [None]
